FAERS Safety Report 7584929-1 (Version None)
Quarter: 2011Q2

REPORT INFORMATION
  Report Type: 
  Country: None (occurrence: None)
  Receive Date: 20110630
  Receipt Date: 20110621
  Transmission Date: 20111010
  Serious: Yes (Hospitalization)
  Sender: FDA-Public Use
  Company Number: JP-TYCO HEALTHCARE/MALLINCKRODT-T201101248

PATIENT
  Sex: Male
  Weight: 57.45 kg

DRUGS (11)
  1. METHADONE HCL [Suspect]
     Indication: CANCER PAIN
     Dosage: 5 MG, TID
     Route: 048
     Dates: start: 20110521, end: 20110524
  2. METHADONE HCL [Suspect]
     Dosage: 10 MG, BID
     Route: 048
     Dates: start: 20110525, end: 20110613
  3. AMLODIPINE BESYLATE [Concomitant]
     Indication: BLOOD PRESSURE INCREASED
     Dosage: 5 MG, PRN
     Dates: start: 20110607
  4. TRAVELMIN                          /00517301/ [Concomitant]
     Dosage: 50 MG, TID
  5. MORPHINE [Concomitant]
     Indication: PAIN
     Dosage: 10 MG, PRN
  6. MAGMITT [Concomitant]
     Dosage: 330 MG, TID
     Dates: start: 20110523
  7. LAXOBERON [Concomitant]
     Indication: CONSTIPATION
     Dosage: ADEQUATE DOSE FOR CONSTIPATION
     Dates: start: 20110523
  8. RINDERON                           /00008501/ [Concomitant]
     Dosage: 2 MG, BID
     Dates: start: 20110530
  9. MUCOSTA [Concomitant]
     Dosage: 100 MG, TID
  10. PURSENNID                          /00142207/ [Concomitant]
     Dosage: 24 MG, QD
     Dates: start: 20110523
  11. LANSOPRAZOLE [Concomitant]
     Dosage: 15 MG, QD

REACTIONS (2)
  - CHEST DISCOMFORT [None]
  - ELECTROCARDIOGRAM QT PROLONGED [None]
